FAERS Safety Report 14952073 (Version 1)
Quarter: 2018Q2

REPORT INFORMATION
  Report Type: Spontaneous
  Country: US (occurrence: US)
  Receive Date: 20180530
  Receipt Date: 20180530
  Transmission Date: 20180711
  Serious: No
  Sender: FDA-Public Use
  Company Number: US-UNITED THERAPEUTICS-UNT-2018-007214

PATIENT
  Age: 33 Year
  Sex: Female
  Weight: 106.12 kg

DRUGS (1)
  1. REMODULIN [Suspect]
     Active Substance: TREPROSTINIL
     Indication: PULMONARY ARTERIAL HYPERTENSION
     Dosage: 0.020 ?G/KG, CONTINUING
     Route: 041
     Dates: start: 20180516

REACTIONS (4)
  - Oedema [Unknown]
  - Dyspnoea [Unknown]
  - Fatigue [Unknown]
  - Dermatitis contact [Unknown]

NARRATIVE: CASE EVENT DATE: 201805
